FAERS Safety Report 18067095 (Version 1)
Quarter: 2020Q3

REPORT INFORMATION
  Report Type: Spontaneous
  Country: IN (occurrence: IN)
  Receive Date: 20200724
  Receipt Date: 20200724
  Transmission Date: 20201103
  Serious: Yes (Death, Hospitalization, Other)
  Sender: FDA-Public Use
  Company Number: IN-MEDEXUS PHARMA, INC.-2020MED00212

PATIENT
  Age: 3 Year
  Sex: Male

DRUGS (7)
  1. FOLINIC ACID [Concomitant]
     Active Substance: LEUCOVORIN
     Dosage: 15 G/M2 (AT 42 HOURS, THEN EVERY 6 HOURS UNTIL MTX LEVEL WAS 0.2 ?MOL/L)
     Route: 065
  2. DEXTROSE 0.45% NORMAL SALINE [Concomitant]
     Route: 042
  3. SODIUM BICARBONATE. [Concomitant]
     Active Substance: SODIUM BICARBONATE
     Dosage: 40 MEQ/L (125 ML/HR/M2 8 HOURS BEFORE MTX, CONTINUED FOR 72 HOURS)
     Route: 042
  4. POTASSIUM CHLORIDE. [Concomitant]
     Active Substance: POTASSIUM CHLORIDE
     Dosage: 20 MMOL/L (PROVIDED AT A RATE OF 125 ML/HR/M2 8 HOURS BEFORE METHOTREXATE AND CONTINUED FOR 72 HOURS
     Route: 042
  5. VINCRISTINE [Concomitant]
     Active Substance: VINCRISTINE
     Dosage: (ONE DOSE ON THE FIRST DAY OF RELAPSE TREATMENT)
     Route: 065
  6. DEXAMETHASONE. [Concomitant]
     Active Substance: DEXAMETHASONE
     Dosage: 10 G/M2 (IN TWO DIVIDED DOSES FROM THE FIRST DAY TO THE FIFTH)
     Route: 065
  7. METHOTREXATE. [Suspect]
     Active Substance: METHOTREXATE
     Indication: ACUTE LYMPHOCYTIC LEUKAEMIA RECURRENT
     Route: 065

REACTIONS (6)
  - Febrile neutropenia [Fatal]
  - Cardiac arrest [Fatal]
  - Respiratory distress [Unknown]
  - Acute hepatic failure [Fatal]
  - Haemorrhage [Unknown]
  - Pancytopenia [Fatal]
